FAERS Safety Report 16310752 (Version 4)
Quarter: 2021Q4

REPORT INFORMATION
  Report Type: Spontaneous
  Country: US (occurrence: None)
  Receive Date: 20190514
  Receipt Date: 20211221
  Transmission Date: 20220303
  Serious: Yes (Other)
  Sender: FDA-Public Use
  Company Number: 2019SE67820

PATIENT
  Age: 25148 Day
  Sex: Female
  Weight: 57.2 kg

DRUGS (29)
  1. PRILOSEC [Suspect]
     Active Substance: OMEPRAZOLE MAGNESIUM
     Indication: Abdominal pain upper
     Route: 048
     Dates: start: 2012, end: 2016
  2. PRILOSEC [Suspect]
     Active Substance: OMEPRAZOLE MAGNESIUM
     Indication: Abdominal pain upper
     Route: 048
     Dates: start: 2018
  3. PROTONIX [Suspect]
     Active Substance: PANTOPRAZOLE SODIUM
     Indication: Abdominal pain upper
     Route: 065
     Dates: start: 2012, end: 2016
  4. PROTONIX [Suspect]
     Active Substance: PANTOPRAZOLE SODIUM
     Indication: Abdominal pain upper
     Route: 065
     Dates: start: 20141203
  5. PROTONIX [Suspect]
     Active Substance: PANTOPRAZOLE SODIUM
     Indication: Abdominal pain upper
     Dosage: 10.0MG UNKNOWN
     Route: 065
     Dates: start: 2012, end: 2016
  6. PRAVASTATIN [Concomitant]
     Active Substance: PRAVASTATIN
     Indication: Blood cholesterol
     Route: 048
  7. PRAVASTATIN [Concomitant]
     Active Substance: PRAVASTATIN
     Indication: Blood cholesterol
     Route: 065
     Dates: start: 2014
  8. VITAMIN B [Concomitant]
     Active Substance: VITAMIN B
     Indication: Routine health maintenance
     Dosage: ONE TABLET BY MOUTH ONCE A DAY
     Route: 048
     Dates: start: 2014
  9. VITAMIN B [Concomitant]
     Active Substance: VITAMIN B
     Indication: Routine health maintenance
     Route: 065
     Dates: start: 20141203
  10. VITAMIN C [Concomitant]
     Active Substance: ASCORBIC ACID
     Route: 048
     Dates: start: 20141203
  11. SPIRIVA [Concomitant]
     Active Substance: TIOTROPIUM BROMIDE MONOHYDRATE
     Indication: Dyspnoea
     Route: 065
     Dates: start: 20141203
  12. LASIX [Concomitant]
     Active Substance: FUROSEMIDE
     Indication: Joint swelling
     Route: 065
     Dates: start: 20141203
  13. ASPIRIN [Concomitant]
     Active Substance: ASPIRIN
     Dates: start: 2014
  14. CALCIUM CARBONATE\ERGOCALCIFEROL\RETINOL [Concomitant]
     Active Substance: CALCIUM CARBONATE\ERGOCALCIFEROL\RETINOL
     Indication: Blood calcium
     Route: 048
     Dates: start: 20141203
  15. CALCIUM CARBONATE\ERGOCALCIFEROL\RETINOL [Concomitant]
     Active Substance: CALCIUM CARBONATE\ERGOCALCIFEROL\RETINOL
     Indication: Blood calcium
     Route: 065
     Dates: start: 2014
  16. COREG [Concomitant]
     Active Substance: CARVEDILOL
     Route: 048
     Dates: start: 20141203
  17. ISOSORBIDE MONONITRATE [Concomitant]
     Active Substance: ISOSORBIDE MONONITRATE
     Route: 065
     Dates: start: 20141203
  18. NASONEX [Concomitant]
     Active Substance: MOMETASONE FUROATE
     Indication: Hypersensitivity
     Dosage: ONE SPRAY INTO BOTH NOSTRILS ONCE A DAY AS NEEDED.
     Dates: start: 20141203
  19. NASONEX [Concomitant]
     Active Substance: MOMETASONE FUROATE
     Indication: Hypersensitivity
     Route: 065
     Dates: start: 2014
  20. NITROSTAT [Concomitant]
     Active Substance: NITROGLYCERIN
     Dosage: AS NEEDED
     Route: 065
     Dates: start: 20141203
  21. PLAVIX [Concomitant]
     Active Substance: CLOPIDOGREL BISULFATE
     Indication: Myocardial infarction
     Route: 048
  22. PLAVIX [Concomitant]
     Active Substance: CLOPIDOGREL BISULFATE
     Indication: Myocardial infarction
     Route: 065
     Dates: start: 2014
  23. TRAMADOL [Concomitant]
     Active Substance: TRAMADOL
     Indication: Pain
     Dosage: AS NEEDED
     Route: 048
     Dates: start: 20141203
  24. VENTOLIN [Concomitant]
     Active Substance: ALBUTEROL SULFATE
     Indication: Pain
     Dates: start: 20141203
  25. VITAMIN D3 [Concomitant]
     Active Substance: CHOLECALCIFEROL
     Route: 048
     Dates: start: 20141203
  26. VITAMIN E [Concomitant]
     Active Substance: .ALPHA.-TOCOPHEROL
     Dosage: 400 UNIT
     Route: 048
     Dates: start: 2014
  27. ZYRTEC [Concomitant]
     Active Substance: CETIRIZINE HYDROCHLORIDE
     Route: 048
  28. CLARITIN [Concomitant]
     Active Substance: LORATADINE
     Route: 065
     Dates: start: 20141203
  29. KLOR-CON [Concomitant]
     Active Substance: POTASSIUM CHLORIDE

REACTIONS (3)
  - Chronic kidney disease [Not Recovered/Not Resolved]
  - Hyperparathyroidism secondary [Unknown]
  - Chronic kidney disease-mineral and bone disorder [Unknown]

NARRATIVE: CASE EVENT DATE: 20140228
